FAERS Safety Report 16634051 (Version 1)
Quarter: 2019Q3

REPORT INFORMATION
  Report Type: Report from Study
  Country: IT (occurrence: IT)
  Receive Date: 20190725
  Receipt Date: 20190725
  Transmission Date: 20191004
  Serious: Yes (Hospitalization)
  Sender: FDA-Public Use
  Company Number: IT-BAXTER-2019BAX014136

PATIENT
  Age: 27 Year
  Sex: Male

DRUGS (1)
  1. ACQUA PER PREPARAZIONI INIETTABILI BAXTER [Suspect]
     Active Substance: WATER
     Indication: PRODUCT ADMINISTRATION ERROR
     Route: 042
     Dates: start: 20190627, end: 20190627

REACTIONS (2)
  - Medication error [Recovering/Resolving]
  - Haemolysis [Recovering/Resolving]

NARRATIVE: CASE EVENT DATE: 20190627
